FAERS Safety Report 16715516 (Version 1)
Quarter: 2019Q3

REPORT INFORMATION
  Report Type: Spontaneous
  Country: JP (occurrence: JP)
  Receive Date: 20190819
  Receipt Date: 20190819
  Transmission Date: 20191005
  Serious: Yes (Hospitalization)
  Sender: FDA-Public Use
  Company Number: JP-NOVOPROD-678043

PATIENT
  Sex: Female
  Weight: 65 kg

DRUGS (2)
  1. VICTOZA [Suspect]
     Active Substance: LIRAGLUTIDE
     Dosage: 0.6 MG, QD
     Route: 058
     Dates: end: 20190804
  2. VICTOZA [Suspect]
     Active Substance: LIRAGLUTIDE
     Indication: WEIGHT CONTROL
     Dosage: 0.3 MG, QD
     Route: 058

REACTIONS (7)
  - Swelling of eyelid [Unknown]
  - Tonsillar hypertrophy [Unknown]
  - Swelling face [Unknown]
  - Peripheral swelling [Unknown]
  - Off label use [Unknown]
  - Pyrexia [Unknown]
  - Urticaria [Recovered/Resolved]

NARRATIVE: CASE EVENT DATE: 20190804
